FAERS Safety Report 7961650-9 (Version None)
Quarter: 2011Q4

REPORT INFORMATION
  Report Type: 
  Country: None (occurrence: None)
  Receive Date: 20111207
  Receipt Date: 20111202
  Transmission Date: 20120403
  Serious: Yes (Hospitalization)
  Sender: FDA-Public Use
  Company Number: RU-SANOFI-AVENTIS-2011SA079229

PATIENT
  Age: 57 Year
  Sex: Female

DRUGS (2)
  1. CAPOTEN [Concomitant]
  2. INDAPAMIDE [Suspect]
     Indication: HYPERTENSION
     Route: 048
     Dates: start: 20100710

REACTIONS (1)
  - CIRCULATORY COLLAPSE [None]
